FAERS Safety Report 4552452-4 (Version None)
Quarter: 2005Q1

REPORT INFORMATION
  Report Type: 
  Country: None (occurrence: None)
  Receive Date: 20050114
  Receipt Date: 20031216
  Transmission Date: 20050727
  Serious: No
  Sender: FDA-Public Use
  Company Number: US-BRISTOL-MYERS SQUIBB COMPANY-12460838

PATIENT
  Sex: Female

DRUGS (2)
  1. CISPLATIN [Suspect]
     Indication: OVARIAN CANCER
     Route: 042
  2. CYTOXAN [Concomitant]

REACTIONS (2)
  - AGEUSIA [None]
  - DYSGEUSIA [None]
